FAERS Safety Report 15231123 (Version 1)
Quarter: 2018Q3

REPORT INFORMATION
  Report Type: Spontaneous
  Country: US (occurrence: US)
  Receive Date: 20180802
  Receipt Date: 20180802
  Transmission Date: 20181010
  Serious: Yes (Hospitalization)
  Sender: FDA-Public Use
  Company Number: US-ORPHAN EUROPE-2053121

PATIENT
  Age: 14 Month
  Sex: Male

DRUGS (1)
  1. CARBAGLU [Suspect]
     Active Substance: CARGLUMIC ACID
     Indication: METHYLMALONIC ACIDURIA
     Dates: start: 20170719

REACTIONS (3)
  - Bowel movement irregularity [Recovering/Resolving]
  - Haematemesis [Recovering/Resolving]
  - Metabolic disorder [Recovering/Resolving]

NARRATIVE: CASE EVENT DATE: 20180714
